FAERS Safety Report 26191195 (Version 1)
Quarter: 2025Q4

REPORT INFORMATION
  Report Type: Spontaneous
  Country: EU (occurrence: EU)
  Receive Date: 20251223
  Receipt Date: 20251223
  Transmission Date: 20260118
  Serious: Yes (Death, Other)
  Sender: AUROBINDO
  Company Number: EU-PFIZER INC-2020003070

PATIENT

DRUGS (10)
  1. PREDNISONE [Suspect]
     Active Substance: PREDNISONE
     Indication: Diffuse large B-cell lymphoma
     Dosage: 60 MILLIGRAM/SQ. METER (PER OS, DAYS -7 TO -1)
     Route: 061
  2. PREDNISONE [Suspect]
     Active Substance: PREDNISONE
     Dosage: 40 MILLIGRAM/SQ. METER (CYCLIC (D1 TO D5, 21-DAYS CYCLE))
     Route: 065
  3. DOXORUBICIN HYDROCHLORIDE [Suspect]
     Active Substance: DOXORUBICIN HYDROCHLORIDE
     Indication: Diffuse large B-cell lymphoma
     Dosage: 25 MILLIGRAM/SQ. METER (CYCLIC (ON D1, 21-DAYS CYCLE))
     Route: 065
  4. VINCRISTINE SULFATE [Suspect]
     Active Substance: VINCRISTINE SULFATE
     Indication: Diffuse large B-cell lymphoma
     Dosage: 1 MILLIGRAM (CYCLIC (TD ON D1, 21-DAYS CYCLE FOR 6 CYCLES))
     Route: 065
  5. VINCRISTINE SULFATE [Suspect]
     Active Substance: VINCRISTINE SULFATE
     Dosage: 1 MILLIGRAM (CYCLIC (TD AT D-7))
  6. VINCRISTINE SULFATE [Suspect]
     Active Substance: VINCRISTINE SULFATE
     Dosage: 1 MILLIGRAM 1 MG, TD ON D1
     Route: 065
  7. RITUXIMAB [Suspect]
     Active Substance: RITUXIMAB
     Indication: Diffuse large B-cell lymphoma
     Dosage: 375 MILLIGRAM/SQ. METER (CYCLIC (ON D1, FIRST CYCLE))
  8. RITUXIMAB [Suspect]
     Active Substance: RITUXIMAB
     Dosage: 1400 MILLIGRAM (CYCLIC (TD ON D1 OF CYCLES 2-6))
  9. CYCLOPHOSPHAMIDE [Suspect]
     Active Substance: CYCLOPHOSPHAMIDE
     Indication: Diffuse large B-cell lymphoma
     Dosage: 400 MILLIGRAM/SQ. METER (CYCLIC (ON D1,21-DAYS CYCLE))
     Route: 065
  10. LENALIDOMIDE [Suspect]
     Active Substance: LENALIDOMIDE
     Indication: Diffuse large B-cell lymphoma
     Dosage: 10 MILLIGRAM 10 MG TD ON D1 TO D14 EVERY 3 WEEKS
     Route: 065

REACTIONS (3)
  - Death [Fatal]
  - Toxicity to various agents [Fatal]
  - Incorrect route of product administration [Fatal]
